FAERS Safety Report 6599518-5 (Version None)
Quarter: 2010Q1

REPORT INFORMATION
  Report Type: 
  Country: None (occurrence: None)
  Receive Date: 20100224
  Receipt Date: 20100212
  Transmission Date: 20100710
  Serious: Yes (Death, Hospitalization)
  Sender: FDA-Public Use
  Company Number: JP-ROCHE-676720

PATIENT
  Sex: Male
  Weight: 59 kg

DRUGS (14)
  1. VESANOID [Suspect]
     Indication: ACUTE PROMYELOCYTIC LEUKAEMIA
     Route: 048
     Dates: start: 20090424, end: 20090515
  2. VESANOID [Suspect]
     Route: 048
     Dates: start: 20090522, end: 20090702
  3. FARMORUBICIN [Suspect]
     Indication: ACUTE PROMYELOCYTIC LEUKAEMIA
     Route: 013
     Dates: start: 20070201, end: 20090301
  4. URSO 250 [Concomitant]
     Route: 048
     Dates: start: 20070201, end: 20090701
  5. NEO-MINOPHAGEN C [Concomitant]
     Route: 042
     Dates: start: 20070201, end: 20090701
  6. TAKEPRON [Concomitant]
     Dosage: FORM: PERORAL AGENT
     Route: 048
     Dates: start: 20090401, end: 20090701
  7. LASIX [Concomitant]
     Dosage: FORM: PERORAL AGENT
     Route: 048
     Dates: start: 20070201, end: 20090701
  8. ALDACTONE [Concomitant]
     Route: 048
     Dates: start: 20070201, end: 20090701
  9. MYSLEE [Concomitant]
     Route: 048
     Dates: start: 20090401, end: 20090701
  10. CARBENIN [Concomitant]
     Route: 041
     Dates: start: 20090401, end: 20090701
  11. MEROPENEM TRIHYDRATE [Concomitant]
     Route: 041
     Dates: start: 20090401, end: 20090701
  12. FUNGUARD [Concomitant]
     Route: 041
     Dates: start: 20090401, end: 20090701
  13. MAXIPIME [Concomitant]
     Route: 041
     Dates: start: 20090401, end: 20090701
  14. ACYCLOVIR [Concomitant]
     Route: 041
     Dates: start: 20090401, end: 20090701

REACTIONS (3)
  - PYREXIA [None]
  - RETINOIC ACID SYNDROME [None]
  - SEPTIC SHOCK [None]
